FAERS Safety Report 7339258-8 (Version None)
Quarter: 2011Q1

REPORT INFORMATION
  Report Type: 
  Country: None (occurrence: None)
  Receive Date: 20110228
  Receipt Date: 20110216
  Transmission Date: 20110831
  Serious: Yes (Other)
  Sender: FDA-Public Use
  Company Number: 829887

PATIENT
  Age: 46 Year
  Sex: Female
  Weight: 97.73 kg

DRUGS (1)
  1. MORPHINE SULFATE [Suspect]
     Indication: PAIN
     Dosage: 8 MG; INTRAVENOUS
     Route: 042
     Dates: start: 20110216

REACTIONS (2)
  - PRURITUS [None]
  - URTICARIA [None]
